FAERS Safety Report 24876631 (Version 2)
Quarter: 2025Q1

REPORT INFORMATION
  Report Type: Spontaneous
  Country: US (occurrence: US)
  Receive Date: 20250123
  Receipt Date: 20250203
  Transmission Date: 20250409
  Serious: No
  Sender: BIOVITRUM
  Company Number: US-BIOVITRUM-2024-US-014960

PATIENT
  Age: 75 Year
  Sex: Female

DRUGS (3)
  1. KINERET [Suspect]
     Active Substance: ANAKINRA
     Indication: Arthritis
     Route: 058
  2. KINERET [Suspect]
     Active Substance: ANAKINRA
     Route: 058
  3. KINERET [Suspect]
     Active Substance: ANAKINRA
     Route: 058
     Dates: start: 20250121

REACTIONS (7)
  - Product use issue [Not Recovered/Not Resolved]
  - Product distribution issue [Unknown]
  - Product storage error [Unknown]
  - Product dose omission issue [Unknown]
  - Pain [Unknown]
  - Off label use [Not Recovered/Not Resolved]
  - Weight increased [Unknown]

NARRATIVE: CASE EVENT DATE: 20250121
